FAERS Safety Report 5779992-4 (Version None)
Quarter: 2008Q2

REPORT INFORMATION
  Report Type: 
  Country: None (occurrence: None)
  Receive Date: 20080620
  Receipt Date: 20080610
  Transmission Date: 20081010
  Serious: Yes (Hospitalization)
  Sender: FDA-Public Use
  Company Number: FR-JNJFOC-20080603793

PATIENT
  Sex: Male

DRUGS (8)
  1. ULTRACET [Suspect]
     Indication: BACK PAIN
     Route: 048
  2. KETOPROFEN [Suspect]
     Indication: BACK PAIN
     Route: 048
  3. CASODEX [Concomitant]
  4. ZOLADEX [Concomitant]
     Route: 050
  5. PRAVASTATIN [Concomitant]
  6. BRICANYL [Concomitant]
     Route: 055
  7. CIBACALCINE [Concomitant]
  8. PANTOPRAZOLE SODIUM [Concomitant]

REACTIONS (2)
  - DIVERTICULUM INTESTINAL [None]
  - RECTAL HAEMORRHAGE [None]
